FAERS Safety Report 12990230 (Version 2)
Quarter: 2016Q4

REPORT INFORMATION
  Report Type: Spontaneous
  Country: MZ (occurrence: MZ)
  Receive Date: 20161201
  Receipt Date: 20161214
  Transmission Date: 20170207
  Serious: Yes (Death)
  Sender: FDA-Public Use
  Company Number: MZ-JNJFOC-20161128585

PATIENT
  Sex: Male
  Weight: 67 kg

DRUGS (13)
  1. PYRAZINAMIDE. [Suspect]
     Active Substance: PYRAZINAMIDE
     Indication: TUBERCULOSIS
     Route: 065
     Dates: start: 20161111, end: 20161124
  2. ETHIONAMIDE [Suspect]
     Active Substance: ETHIONAMIDE
     Indication: TUBERCULOSIS
     Route: 065
     Dates: start: 20150812
  3. MOXIFLOXACIN. [Suspect]
     Active Substance: MOXIFLOXACIN
     Indication: TUBERCULOSIS
     Route: 065
     Dates: start: 20161111, end: 20161124
  4. PROMETHAZINE [Concomitant]
     Active Substance: PROMETHAZINE\PROMETHAZINE HYDROCHLORIDE
     Route: 065
     Dates: start: 20161102, end: 20161111
  5. CLOFAZIMINE [Suspect]
     Active Substance: CLOFAZIMINE
     Indication: TUBERCULOSIS
     Route: 065
     Dates: start: 20161111, end: 20161124
  6. PYRIDOXINE [Concomitant]
     Active Substance: PYRIDOXINE
     Route: 048
     Dates: start: 20161111, end: 20161124
  7. SIRTURO [Suspect]
     Active Substance: BEDAQUILINE FUMARATE
     Indication: TUBERCULOSIS
     Route: 048
     Dates: start: 20161111, end: 20161124
  8. LEVOTHYROXIN [Concomitant]
     Active Substance: LEVOTHYROXINE
     Route: 065
     Dates: end: 20161111
  9. HALOPERIDOL. [Concomitant]
     Active Substance: HALOPERIDOL
     Route: 065
     Dates: start: 20161102, end: 20161111
  10. LINEZOLID. [Suspect]
     Active Substance: LINEZOLID
     Indication: TUBERCULOSIS
     Route: 065
     Dates: start: 20161111, end: 20161124
  11. AMOCLAVE [Suspect]
     Active Substance: AMOXICILLIN\CLAVULANATE POTASSIUM
     Indication: TUBERCULOSIS
     Route: 065
     Dates: start: 20150812
  12. THIORIDAZINE [Concomitant]
     Active Substance: THIORIDAZINE
     Route: 065
     Dates: start: 20161102, end: 20161111
  13. PARA-AMINOSALICYLIC ACID [Suspect]
     Active Substance: AMINOSALICYLIC ACID
     Indication: TUBERCULOSIS
     Route: 065
     Dates: start: 20161111, end: 20161124

REACTIONS (2)
  - Death [Fatal]
  - Diarrhoea [Unknown]
